FAERS Safety Report 23772930 (Version 4)
Quarter: 2024Q2

REPORT INFORMATION
  Report Type: Spontaneous
  Country: US (occurrence: US)
  Receive Date: 20240423
  Receipt Date: 20240530
  Transmission Date: 20240716
  Serious: Yes (Other)
  Sender: FDA-Public Use
  Company Number: US-SANOFI-02018876

PATIENT
  Age: 47 Year
  Sex: Female

DRUGS (1)
  1. LANTUS SOLOSTAR [Suspect]
     Active Substance: INSULIN GLARGINE
     Indication: Type 2 diabetes mellitus
     Dosage: 70 IU, QD
     Route: 065

REACTIONS (4)
  - Loss of consciousness [Unknown]
  - Tremor [Unknown]
  - Blood glucose increased [Unknown]
  - Drug ineffective [Unknown]
